FAERS Safety Report 9458306 (Version 1)
Quarter: 2013Q3

REPORT INFORMATION
  Report Type: Spontaneous
  Country: US (occurrence: None)
  Receive Date: 20130813
  Receipt Date: 20130813
  Transmission Date: 20140515
  Serious: Yes (Hospitalization)
  Sender: FDA-Public Use
  Company Number: None

PATIENT
  Age: 73 Year
  Sex: Male
  Weight: 109 kg

DRUGS (2)
  1. ETODOLAC [Suspect]
     Indication: PAIN
     Dosage: 400MG  TID  PO
     Route: 048
     Dates: start: 20130424, end: 20130501
  2. ETODOLAC [Suspect]
     Indication: OSTEOARTHRITIS
     Dosage: 400MG  TID  PO
     Route: 048
     Dates: start: 20130424, end: 20130501

REACTIONS (1)
  - Stevens-Johnson syndrome [None]
